FAERS Safety Report 8515413-6 (Version None)
Quarter: 2012Q3

REPORT INFORMATION
  Report Type: 
  Country: None (occurrence: None)
  Receive Date: 20120717
  Receipt Date: 20120709
  Transmission Date: 20120928
  Serious: Yes (Hospitalization, Other)
  Sender: FDA-Public Use
  Company Number: US-009507513-2011SP046463

PATIENT
  Sex: Female
  Weight: 65.77 kg

DRUGS (3)
  1. NUVARING [Suspect]
     Indication: CONTRACEPTION
     Dates: start: 20090601, end: 20091002
  2. ADDERALL XR 10 [Concomitant]
     Indication: ATTENTION DEFICIT/HYPERACTIVITY DISORDER
     Dosage: INCREASED TO 20 MG DAILY PRIOR TO 03DEC2009; LATER INCREASED TO 30 MG DAILY
     Route: 048
     Dates: start: 20090528
  3. NUVARING [Suspect]
     Dosage: UNK
     Dates: start: 20090226

REACTIONS (3)
  - HEADACHE [None]
  - PAIN IN EXTREMITY [None]
  - PULMONARY EMBOLISM [None]
